FAERS Safety Report 8798853 (Version 1)
Quarter: 2012Q4

REPORT INFORMATION
  Report Type: 
  Country: IT (occurrence: IT)
  Receive Date: 20120920
  Receipt Date: 20120920
  Transmission Date: 20130627
  Serious: Yes (Hospitalization)
  Sender: FDA-Public Use
  Company Number: IT-GLAXOSMITHKLINE-B0688729A

PATIENT
  Age: 52 Year
  Sex: Female

DRUGS (2)
  1. TYVERB [Suspect]
     Indication: BREAST CANCER METASTATIC
     Dosage: 1250MG per day
     Route: 048
     Dates: start: 20090803, end: 20091204
  2. CAPECITABINE [Concomitant]
     Indication: BREAST CANCER
     Dosage: 400MG per day
     Route: 048
     Dates: start: 20090713, end: 20091104

REACTIONS (1)
  - Venous thrombosis [Recovered/Resolved with Sequelae]
